FAERS Safety Report 15189983 (Version 1)
Quarter: 2018Q3

REPORT INFORMATION
  Report Type: Report from Study
  Country: BE (occurrence: BE)
  Receive Date: 20180724
  Receipt Date: 20180724
  Transmission Date: 20181010
  Serious: Yes (Hospitalization, Other)
  Sender: FDA-Public Use
  Company Number: BE-PFIZER INC-2018292253

PATIENT
  Age: 57 Year
  Sex: Male
  Weight: 81 kg

DRUGS (16)
  1. IMODIUM [Concomitant]
     Active Substance: LOPERAMIDE HYDROCHLORIDE
     Route: 065
     Dates: start: 20160502, end: 20180116
  2. TASECTAN [Concomitant]
     Active Substance: GELATIN
     Route: 065
     Dates: start: 20171002
  3. FLUOROURACIL. [Suspect]
     Active Substance: FLUOROURACIL
     Dosage: 1 UNK, CYCLIC (EVERY 2 WEEKS, 30 CYCLES)
     Route: 065
     Dates: start: 20170612
  4. LEUCOVORIN /00566702/ [Suspect]
     Active Substance: LEUCOVORIN
     Indication: COLORECTAL CANCER METASTATIC
     Dosage: 30 CYCLES
     Route: 065
     Dates: start: 20151124
  5. LEUCOVORIN /00566702/ [Suspect]
     Active Substance: LEUCOVORIN
     Dosage: 1 UNK, CYCLIC (EVERY 2 WEEKS)
     Route: 065
     Dates: start: 20170612
  6. ASAFLOW [Concomitant]
     Active Substance: ASPIRIN
     Indication: PROPHYLAXIS
     Route: 065
     Dates: start: 20161212
  7. BEVACIZUMAB. [Suspect]
     Active Substance: BEVACIZUMAB
     Indication: COLORECTAL CANCER METASTATIC
     Dosage: 1 UNK, CYCLIC (EVERY 2 WEEKS, 30 CYCLES)
     Route: 042
     Dates: start: 20151124
  8. FLUOROURACIL. [Suspect]
     Active Substance: FLUOROURACIL
     Indication: COLORECTAL CANCER METASTATIC
     Dosage: 1 UNK, CYCLIC (EVERY 2 WEEKS, 30 CYCLES)
     Route: 065
     Dates: start: 20151124
  9. BEVACIZUMAB. [Suspect]
     Active Substance: BEVACIZUMAB
     Dosage: 1 UNK, CYCLIC (EVERY 2 WEEKS)
     Route: 042
     Dates: start: 20170612
  10. CARDIOASPIRINE [Concomitant]
     Active Substance: ASPIRIN
     Indication: PROPHYLAXIS
     Route: 065
     Dates: start: 20151112
  11. CICAPLAST(CENTELLA/CU GLUC/HYALURONATE NA/MANGANESE GLUC/ZINC GLUC) [Concomitant]
     Route: 065
     Dates: start: 20180219, end: 20180305
  12. MITOSYL /00263601/ [Concomitant]
     Indication: PROPHYLAXIS
     Route: 065
     Dates: start: 20170727, end: 20170807
  13. IRINOTECAN HCL [Suspect]
     Active Substance: IRINOTECAN HYDROCHLORIDE
     Indication: COLORECTAL CANCER METASTATIC
     Dosage: 1 UNK, CYCLIC (EVERY 2 WEEKS)
     Route: 065
     Dates: start: 20170612
  14. OMEPRAZOL [Concomitant]
     Active Substance: OMEPRAZOLE
     Indication: PROPHYLAXIS
     Route: 065
     Dates: start: 20151112
  15. D?CURE [Concomitant]
     Active Substance: CHOLECALCIFEROL
     Route: 065
     Dates: start: 20170403
  16. FOLAVIT [Concomitant]
     Active Substance: FOLIC ACID
     Indication: PROPHYLAXIS
     Route: 065
     Dates: start: 20151112

REACTIONS (13)
  - Pain in extremity [Recovered/Resolved]
  - Insomnia [Recovered/Resolved]
  - Anal fissure [Recovered/Resolved]
  - Hepatic enzyme increased [Not Recovered/Not Resolved]
  - Lung disorder [Recovered/Resolved]
  - Abdominal pain upper [Recovered/Resolved]
  - Rhinorrhoea [Not Recovered/Not Resolved]
  - Asthenia [Not Recovered/Not Resolved]
  - Chest pain [Recovered/Resolved]
  - Cholestasis [Not Recovered/Not Resolved]
  - Mucosal inflammation [Recovered/Resolved]
  - Dry skin [Not Recovered/Not Resolved]
  - Abdominal pain upper [Recovered/Resolved]

NARRATIVE: CASE EVENT DATE: 20170727
